FAERS Safety Report 9118859 (Version 2)
Quarter: 2013Q2

REPORT INFORMATION
  Report Type: Spontaneous
  Country: GB (occurrence: GB)
  Receive Date: 20130226
  Receipt Date: 20130405
  Transmission Date: 20140414
  Serious: Yes (Death, Other)
  Sender: FDA-Public Use
  Company Number: PHFR2013GB001355

PATIENT
  Age: 56 Year
  Sex: Female

DRUGS (3)
  1. CLOZARIL [Suspect]
     Indication: SCHIZOPHRENIA
     Dosage: 200 MG, DAILY
     Route: 048
     Dates: start: 20110624
  2. SIMVASTATIN [Concomitant]
     Indication: BLOOD PRESSURE
     Dosage: UNK UKN, UNK
  3. LOSARTAN [Concomitant]
     Indication: BLOOD PRESSURE
     Dosage: UNK UKN, UNK

REACTIONS (3)
  - Cerebral haemorrhage [Fatal]
  - Influenza like illness [Unknown]
  - Blood pressure diastolic increased [Unknown]
